FAERS Safety Report 24445336 (Version 1)
Quarter: 2024Q4

REPORT INFORMATION
  Report Type: Spontaneous
  Country: US (occurrence: US)
  Receive Date: 20241016
  Receipt Date: 20241016
  Transmission Date: 20250115
  Serious: No
  Sender: SANDOZ
  Company Number: US-002147023-NVSC2024US046006

PATIENT
  Age: 57 Year
  Sex: Female
  Weight: 54.42 kg

DRUGS (1)
  1. COMBIPATCH [Suspect]
     Active Substance: ESTRADIOL\NORETHINDRONE ACETATE
     Indication: Osteoporosis
     Dosage: 0.05/0.14 MG
     Route: 062

REACTIONS (5)
  - Vaginal haemorrhage [Recovered/Resolved]
  - Product adhesion issue [Recovered/Resolved]
  - Device difficult to use [Recovered/Resolved]
  - Product administered at inappropriate site [Recovered/Resolved]
  - Off label use [Not Recovered/Not Resolved]

NARRATIVE: CASE EVENT DATE: 20231101
